FAERS Safety Report 17367192 (Version 2)
Quarter: 2020Q1

REPORT INFORMATION
  Report Type: Spontaneous
  Country: US (occurrence: US)
  Receive Date: 20200204
  Receipt Date: 20200310
  Transmission Date: 20200409
  Serious: Yes (Other)
  Sender: FDA-Public Use
  Company Number: US-PFIZER INC-2019561270

PATIENT
  Age: 62 Year
  Sex: Female

DRUGS (1)
  1. XELJANZ XR [Suspect]
     Active Substance: TOFACITINIB CITRATE
     Dosage: 11 MG, UNK
     Dates: start: 201912

REACTIONS (7)
  - Seasonal allergy [Unknown]
  - Feeling abnormal [Unknown]
  - Paranasal sinus hypersecretion [Unknown]
  - Foot fracture [Unknown]
  - Nasopharyngitis [Unknown]
  - Pharyngeal erythema [Unknown]
  - Oropharyngeal pain [Unknown]

NARRATIVE: CASE EVENT DATE: 20200305
